FAERS Safety Report 7725118-7 (Version None)
Quarter: 2011Q3

REPORT INFORMATION
  Report Type: 
  Country: None (occurrence: None)
  Receive Date: 20110901
  Receipt Date: 20110830
  Transmission Date: 20111222
  Serious: Yes (Hospitalization, Other)
  Sender: FDA-Public Use
  Company Number: HU-AMGEN-HUNCT2011003518

PATIENT
  Age: 53 Year
  Sex: Female

DRUGS (5)
  1. ANTIBIOTICS [Concomitant]
     Dosage: UNK
     Dates: start: 20101221, end: 20101226
  2. CARDIOXANE [Concomitant]
     Dosage: 822 MG, UNK
     Route: 042
     Dates: start: 20110105
  3. CYCLOPHOSPHAMIDE [Concomitant]
     Dosage: 987 MG, UNK
     Route: 042
     Dates: start: 20110105
  4. DENOSUMAB [Suspect]
     Indication: BREAST CANCER
     Dosage: UNK
     Dates: start: 20101229
  5. DOXORUBICIN HCL [Concomitant]
     Dosage: 99 MG, UNK
     Route: 042
     Dates: start: 20110105

REACTIONS (2)
  - SEROMA [None]
  - PERIOSTITIS [None]
